FAERS Safety Report 7354332-8 (Version None)
Quarter: 2011Q1

REPORT INFORMATION
  Report Type: 
  Country: None (occurrence: None)
  Receive Date: 20110316
  Receipt Date: 20110302
  Transmission Date: 20110831
  Serious: Yes (Other)
  Sender: FDA-Public Use
  Company Number: US-PAR PHARMACEUTICAL, INC-2011SCPR002745

PATIENT

DRUGS (3)
  1. FLUOXETINE HCL [Suspect]
     Indication: MAJOR DEPRESSION
     Dosage: 20 MG, BID
     Route: 065
  2. FLUOXETINE HCL [Suspect]
     Indication: MAJOR DEPRESSION
     Dosage: 20 MG, 2 QD
     Route: 065
  3. FLUOXETINE HCL [Suspect]
     Dosage: 40 MG, UNKNOWN
     Route: 065

REACTIONS (6)
  - DIZZINESS [None]
  - DECREASED APPETITE [None]
  - DRUG INEFFECTIVE [None]
  - NERVOUSNESS [None]
  - DEPRESSIVE SYMPTOM [None]
  - PRODUCT SUBSTITUTION ISSUE [None]
